FAERS Safety Report 7205775-4 (Version None)
Quarter: 2010Q4

REPORT INFORMATION
  Report Type: 
  Country: None (occurrence: None)
  Receive Date: 20101231
  Receipt Date: 20101229
  Transmission Date: 20110411
  Serious: Yes (Other)
  Sender: FDA-Public Use
  Company Number: US-PFIZER INC-2010181381

PATIENT
  Sex: Male
  Weight: 86 kg

DRUGS (4)
  1. LIPITOR [Suspect]
     Indication: CARDIAC OPERATION
     Dosage: 20 MG, 1X/DAY
     Route: 048
     Dates: start: 20080501
  2. LIPITOR [Suspect]
     Dosage: 10 MG, 1X/DAY
     Dates: start: 20080101
  3. IMURAN [Concomitant]
     Indication: MYASTHENIA GRAVIS
     Dosage: 100 MG, 1X/DAY
     Route: 048
  4. MESTINON [Concomitant]
     Indication: MYASTHENIA GRAVIS
     Dosage: 60 MG, 4X/DAY
     Route: 048

REACTIONS (1)
  - HEPATITIS A [None]
